FAERS Safety Report 6750774-X (Version None)
Quarter: 2010Q2

REPORT INFORMATION
  Report Type: 
  Country: None (occurrence: None)
  Receive Date: 20100602
  Receipt Date: 20100524
  Transmission Date: 20101027
  Serious: No
  Sender: FDA-Public Use
  Company Number: 2009BI031499

PATIENT
  Sex: Female

DRUGS (1)
  1. TYSABRI [Suspect]
     Indication: MULTIPLE SCLEROSIS
     Route: 030
     Dates: start: 20070406, end: 20091211

REACTIONS (7)
  - COUGH [None]
  - DEPRESSION [None]
  - FALL [None]
  - FEAR OF FALLING [None]
  - HOT FLUSH [None]
  - PULMONARY OEDEMA [None]
  - SUICIDAL IDEATION [None]
